FAERS Safety Report 9282238 (Version 3)
Quarter: 2013Q3

REPORT INFORMATION
  Report Type: Spontaneous
  Country: US (occurrence: US)
  Receive Date: 20130510
  Receipt Date: 20130710
  Transmission Date: 20140515
  Serious: No
  Sender: FDA-Public Use
  Company Number: US-PFIZER INC-2013143997

PATIENT
  Age: 71 Year
  Sex: Female

DRUGS (3)
  1. SUTENT [Suspect]
     Indication: RENAL CELL CARCINOMA
     Dosage: 50 MG, QD
     Route: 048
     Dates: start: 20130326
  2. SUTENT [Suspect]
     Dosage: 50 MG, 1X/DAY
     Dates: start: 20130408
  3. SUTENT [Suspect]
     Dosage: 50 MG, ALTERNATE DAY

REACTIONS (21)
  - Abdominal pain upper [Unknown]
  - Stomatitis [Unknown]
  - Rash [Unknown]
  - Asthenia [Unknown]
  - Blood pressure increased [Unknown]
  - Diarrhoea [Unknown]
  - Oesophagitis [Unknown]
  - Vaginal lesion [Unknown]
  - Skin lesion [Unknown]
  - Vomiting [Unknown]
  - Nausea [Unknown]
  - Dysgeusia [Unknown]
  - Decreased appetite [Unknown]
  - Palmar-plantar erythrodysaesthesia syndrome [Unknown]
  - Spinal pain [Unknown]
  - Dizziness [Unknown]
  - Chills [Unknown]
  - Alopecia [Unknown]
  - Fatigue [Unknown]
  - Dry skin [Unknown]
  - Back pain [Unknown]
